FAERS Safety Report 5748882-5 (Version None)
Quarter: 2008Q2

REPORT INFORMATION
  Report Type: 
  Country: None (occurrence: None)
  Receive Date: 20080522
  Receipt Date: 20080508
  Transmission Date: 20081010
  Serious: Yes (Death)
  Sender: FDA-Public Use
  Company Number: MPS1-1000061

PATIENT
  Age: 9 Year
  Sex: Female
  Weight: 15 kg

DRUGS (1)
  1. ALDURAZYME [Suspect]
     Indication: MUCOPOLYSACCHARIDOSIS I
     Dosage: 17 MG, 1X/W, INTRAVENOUS
     Route: 042
     Dates: start: 20030516

REACTIONS (1)
  - NASOPHARYNGITIS [None]
